FAERS Safety Report 9547324 (Version 1)
Quarter: 2013Q3

REPORT INFORMATION
  Report Type: Spontaneous
  Country: US (occurrence: None)
  Receive Date: 20130919
  Receipt Date: 20130919
  Transmission Date: 20140515
  Serious: Yes (Hospitalization, Other)
  Sender: FDA-Public Use
  Company Number: 2012-003424

PATIENT
  Age: 77 Year
  Sex: Female

DRUGS (13)
  1. ACTONEL [Suspect]
     Route: 048
     Dates: start: 20070316, end: 201004
  2. FOSAMAX [Suspect]
     Route: 048
     Dates: start: 20100423
  3. LEVOTHYROXINE(LEVOTHYROXINE) [Concomitant]
  4. ATENOLOL(ATENOLOL) [Concomitant]
  5. TENORETIC (ATENOLOL, CHLORTALIDONE) [Concomitant]
  6. PRINIVIL (LISINOPRIL DIHYRDATE) [Concomitant]
  7. PRINZIDE(HYDROCHLOROTHIAZIDE, LISINOPRIL DIHYDRATE) [Concomitant]
  8. ASPIRIN(ACETYLSALICYLIC ACID) [Concomitant]
  9. SIMVASTATIN (SIMVASTATIN) [Concomitant]
  10. FISH OIL (FISH OIL) [Concomitant]
  11. GLUCOSAMINE AND CHONDROITIN(CHONDROITIN SULFATE SODIUM, GLUCOSAMINE) [Concomitant]
  12. MULTIVITAMIN [Concomitant]
  13. CALCIUM (CALCIUM) [Concomitant]

REACTIONS (11)
  - Femur fracture [None]
  - Fall [None]
  - Pain in extremity [None]
  - Fracture displacement [None]
  - Comminuted fracture [None]
  - Osteonecrosis [None]
  - Spinal osteoarthritis [None]
  - Arthropathy [None]
  - Scoliosis [None]
  - Spinal column stenosis [None]
  - Intervertebral disc protrusion [None]
